FAERS Safety Report 9412946 (Version 1)
Quarter: 2013Q2

REPORT INFORMATION
  Report Type: Spontaneous
  Country: US (occurrence: US)
  Receive Date: 20130626
  Receipt Date: 20130626
  Transmission Date: 20140414
  Serious: Yes (Other)
  Sender: FDA-Public Use
  Company Number: USA/USA/13/0029522

PATIENT
  Age: 25 Year
  Sex: Female

DRUGS (5)
  1. TACROLIMUS (TACROLIMUS) [Suspect]
     Indication: IMMUNOSUPPRESSANT DRUG THERAPY
     Dosage: ?
     Dates: start: 200911
  2. PREDNISONE (PREDNISONE) [Suspect]
     Indication: IMMUNOSUPPRESSANT DRUG THERAPY
  3. MYCOPHENOLATE [Suspect]
     Indication: IMMUNOSUPPRESSANT DRUG THERAPY
  4. SIROLIMUS [Suspect]
     Indication: IMMUNOSUPPRESSANT DRUG THERAPY
  5. TRIMETHOPRIM/SULFAMETHOXAZOLE [Suspect]
     Indication: PROPHYLAXIS

REACTIONS (4)
  - Thrombotic microangiopathy [None]
  - Haemolysis [None]
  - Renal failure acute [None]
  - Thrombocytopenia [None]
